FAERS Safety Report 8996632 (Version 1)
Quarter: 2013Q1

REPORT INFORMATION
  Report Type: Spontaneous
  Country: US (occurrence: US)
  Receive Date: 20130104
  Receipt Date: 20130104
  Transmission Date: 20140127
  Serious: Yes (Other)
  Sender: FDA-Public Use
  Company Number: US-ELI_LILLY_AND_COMPANY-US201212007950

PATIENT
  Age: 67 Year
  Sex: Male

DRUGS (3)
  1. CIALIS [Suspect]
     Indication: ERECTILE DYSFUNCTION
     Dosage: 5 MG, QD
     Dates: start: 20121221
  2. CIALIS [Suspect]
     Dosage: 20 MG, UNK
  3. MS CONTIN [Concomitant]
     Indication: SPINAL FUSION SURGERY
     Dosage: 200 MG, UNK

REACTIONS (3)
  - Spinal fusion surgery [Unknown]
  - Back pain [Recovered/Resolved]
  - Inappropriate schedule of drug administration [Unknown]
